FAERS Safety Report 14186461 (Version 8)
Quarter: 2018Q2

REPORT INFORMATION
  Report Type: Report from Study
  Country: FR (occurrence: FR)
  Receive Date: 20171114
  Receipt Date: 20180531
  Transmission Date: 20180711
  Serious: Yes (Hospitalization)
  Sender: FDA-Public Use
  Company Number: FR-ROCHE-2017301

PATIENT
  Age: 65 Year
  Sex: Female
  Weight: 53 kg

DRUGS (30)
  1. LENALIDOMIDE [Suspect]
     Active Substance: LENALIDOMIDE
     Indication: B-CELL LYMPHOMA
     Dosage: ADMINISTERED AT A DOSE OF 15-20 MG (DOSE MAY BE DE-ESCALATED TO 10 MG) DURING INDUCTION TREATMENT AN
     Route: 048
     Dates: start: 20170711
  2. ARNICA [Concomitant]
     Active Substance: ARNICA MONTANA FLOWER
     Indication: SELF-MEDICATION
     Dosage: 9CH
     Route: 065
     Dates: start: 20170919
  3. ZELITREX [Concomitant]
     Active Substance: VALACYCLOVIR HYDROCHLORIDE
     Indication: PROPHYLAXIS
     Route: 065
     Dates: start: 20170711
  4. ZARZIO [Concomitant]
     Active Substance: FILGRASTIM
     Indication: NEUTROPENIA
     Route: 065
     Dates: start: 20171005, end: 20171009
  5. LEDERFOLINE [Concomitant]
     Active Substance: LEUCOVORIN CALCIUM
     Indication: INFECTION PROPHYLAXIS
     Route: 065
     Dates: start: 20170711
  6. PRIVIGEN [Concomitant]
     Active Substance: HUMAN IMMUNOGLOBULIN G
     Dosage: AS: IMMUNOGLOBULIN SUPPLEMENTATION PROPHYLAXIS
     Route: 065
     Dates: start: 20171121
  7. DYMISTA [Concomitant]
     Active Substance: AZELASTINE HYDROCHLORIDE\FLUTICASONE PROPIONATE
     Indication: NASAL OBSTRUCTION
     Route: 065
     Dates: start: 20180328
  8. RHINOMAXIL [Concomitant]
     Active Substance: BECLOMETHASONE DIPROPIONATE
     Indication: NASAL OBSTRUCTION
     Route: 065
     Dates: start: 20180220, end: 20180320
  9. SOLUPRED (FRANCE) [Concomitant]
     Active Substance: PREDNISOLONE
     Indication: NASAL OBSTRUCTION
     Route: 065
     Dates: start: 20180315, end: 20180319
  10. POLARAMINE [Concomitant]
     Active Substance: DEXCHLORPHENIRAMINE MALEATE
     Route: 065
     Dates: start: 20180410, end: 20180410
  11. LOVENOX [Concomitant]
     Active Substance: ENOXAPARIN SODIUM
     Indication: PROPHYLAXIS
     Route: 065
     Dates: start: 20170711
  12. NASODREN [Concomitant]
     Indication: NASOPHARYNGITIS
     Route: 065
     Dates: start: 20171019, end: 20171024
  13. ESTREVA [Concomitant]
     Active Substance: ESTRADIOL
     Indication: MENOPAUSE
  14. ZARZIO [Concomitant]
     Active Substance: FILGRASTIM
     Route: 065
     Dates: start: 20171121, end: 20171125
  15. INNOVAIR [Concomitant]
     Active Substance: BECLOMETHASONE DIPROPIONATE\FORMOTEROL
     Indication: NASOPHARYNGITIS
     Route: 065
     Dates: start: 20171017, end: 20171030
  16. OBINUTUZUMAB. [Suspect]
     Active Substance: OBINUTUZUMAB
     Indication: B-CELL LYMPHOMA
     Dosage: DAY 1,8 AND 15 OF THE FIRST CYCLE AND DAY 1 OF EACH SUBSEQUENT CYCLE DURING INDUCTION PHASE AND ON D
     Route: 042
     Dates: start: 20170711
  17. ORELOX [Concomitant]
     Active Substance: CEFPODOXIME
     Indication: NASAL OBSTRUCTION
     Route: 065
     Dates: start: 20180315, end: 20180322
  18. UTROGESTAN [Concomitant]
     Active Substance: PROGESTERONE
     Indication: MENOPAUSE
  19. BACTRIM [Concomitant]
     Active Substance: SULFAMETHOXAZOLE\TRIMETHOPRIM
     Indication: INFECTION PROPHYLAXIS
     Route: 065
     Dates: start: 20170711
  20. ZARZIO [Concomitant]
     Active Substance: FILGRASTIM
     Route: 065
     Dates: start: 20171112, end: 20171115
  21. DERINOX (FRANCE) [Concomitant]
     Route: 065
     Dates: start: 20171021, end: 20171023
  22. PRIVIGEN [Concomitant]
     Active Substance: HUMAN IMMUNOGLOBULIN G
     Route: 065
     Dates: start: 20171121, end: 20180410
  23. NUTRITIONAL SUPPLEMENT [Concomitant]
     Active Substance: DIETARY SUPPLEMENT
     Route: 065
     Dates: start: 20180412, end: 20180412
  24. ATEZOLIZUMAB. [Suspect]
     Active Substance: ATEZOLIZUMAB
     Indication: B-CELL LYMPHOMA
     Dosage: DAY 1 AND 15 OF CYCLES 2-6 DIVEN ?THE MOST RECENT DOSE PRIOR TO ADVERSE EVENT: 24/OCT/2017 AT A DOSE
     Route: 042
     Dates: start: 20170808
  25. ZARZIO [Concomitant]
     Active Substance: FILGRASTIM
     Indication: PROPHYLAXIS
     Route: 065
     Dates: start: 20171015, end: 20171018
  26. DERINOX (FRANCE) [Concomitant]
     Indication: NASOPHARYNGITIS
     Route: 065
     Dates: start: 20171004, end: 20171006
  27. RHINOMAXIL [Concomitant]
     Active Substance: BECLOMETHASONE DIPROPIONATE
     Indication: NASOPHARYNGITIS
     Route: 065
     Dates: start: 20171017, end: 20171020
  28. PREDNISOLONE. [Concomitant]
     Active Substance: PREDNISOLONE
     Indication: NASOPHARYNGITIS
     Route: 065
     Dates: start: 20171023, end: 20171024
  29. SOLU-MEDROL [Concomitant]
     Active Substance: METHYLPREDNISOLONE SODIUM SUCCINATE
     Route: 065
     Dates: start: 20180410, end: 20180410
  30. OXYGEN. [Concomitant]
     Active Substance: OXYGEN
     Indication: HYPERSENSITIVITY
     Route: 065
     Dates: start: 20180410, end: 20180410

REACTIONS (3)
  - Influenza [Recovered/Resolved]
  - Lung infection [Recovered/Resolved]
  - Ear infection [Recovered/Resolved]

NARRATIVE: CASE EVENT DATE: 20171029
